FAERS Safety Report 10697379 (Version 1)
Quarter: 2015Q1

REPORT INFORMATION
  Report Type: Spontaneous
  Country: DE (occurrence: DE)
  Receive Date: 20150108
  Receipt Date: 20150108
  Transmission Date: 20150721
  Serious: Yes (Life-Threatening, Hospitalization)
  Sender: FDA-Public Use
  Company Number: DE-SA-2015SA000077

PATIENT
  Age: 16 Year
  Sex: Male

DRUGS (10)
  1. SULFAMETHOXAZOLE [Concomitant]
     Active Substance: SULFAMETHOXAZOLE
  2. TRIMETHOPRIM. [Concomitant]
     Active Substance: TRIMETHOPRIM
  3. VALPROIC ACID. [Concomitant]
     Active Substance: VALPROIC ACID
     Indication: SEIZURE
  4. ANTI-THYMOCYTE GLOBULIN (RABBIT)/RABBIT ANTI-HUMAN THYMOCYTE IMMUNOGLOBULIN [Suspect]
     Active Substance: LAPINE T-LYMPHOCYTE IMMUNE GLOBULIN
     Indication: BONE MARROW CONDITIONING REGIMEN
     Dosage: DAYS 3 TO 1
     Route: 065
  5. ETOPOSIDE. [Suspect]
     Active Substance: ETOPOSIDE
     Indication: BONE MARROW CONDITIONING REGIMEN
     Route: 065
  6. LEVETIRACETAM. [Suspect]
     Active Substance: LEVETIRACETAM
     Indication: SEIZURE
     Route: 065
  7. VORICONAZOLE. [Concomitant]
     Active Substance: VORICONAZOLE
  8. CIPROFLOXACIN. [Concomitant]
     Active Substance: CIPROFLOXACIN
  9. ACICLOVIR [Concomitant]
     Active Substance: ACYCLOVIR
  10. PHENYTOIN. [Concomitant]
     Active Substance: PHENYTOIN
     Indication: SEIZURE

REACTIONS (11)
  - Febrile neutropenia [Unknown]
  - Klebsiella sepsis [None]
  - Bone marrow failure [Recovering/Resolving]
  - Mucosal inflammation [Unknown]
  - Pneumonia klebsiella [Unknown]
  - Transplant failure [Recovering/Resolving]
  - Pancytopenia [Recovering/Resolving]
  - Respiratory failure [Unknown]
  - Neutrophil count decreased [Recovering/Resolving]
  - Pneumonia [Unknown]
  - Sepsis [Unknown]
